FAERS Safety Report 8273732-5 (Version None)
Quarter: 2012Q2

REPORT INFORMATION
  Report Type: 
  Country: None (occurrence: None)
  Receive Date: 20120411
  Receipt Date: 20120403
  Transmission Date: 20120825
  Serious: Yes (Other)
  Sender: FDA-Public Use
  Company Number: US-US-EMD SERONO, INC.-7124263

PATIENT
  Sex: Female

DRUGS (4)
  1. REBIF [Suspect]
     Dates: end: 20120319
  2. OXYCODONE HCL [Concomitant]
     Indication: BONE PAIN
  3. REBIF [Suspect]
     Indication: PRODUCT USED FOR UNKNOWN INDICATION
     Route: 058
     Dates: start: 20110209
  4. LORAZEPAM [Concomitant]
     Indication: STRESS

REACTIONS (3)
  - WHITE BLOOD CELL COUNT DECREASED [None]
  - STRESS [None]
  - BENIGN BREAST NEOPLASM [None]
